FAERS Safety Report 8137901-7 (Version None)
Quarter: 2012Q1

REPORT INFORMATION
  Report Type: 
  Country: None (occurrence: None)
  Receive Date: 20120215
  Receipt Date: 20120206
  Transmission Date: 20120608
  Serious: Yes (Other)
  Sender: FDA-Public Use
  Company Number: US-SANOFI-AVENTIS-2011SA075425

PATIENT
  Age: 89 Year
  Sex: Female

DRUGS (9)
  1. CENTRUM [Concomitant]
  2. ALL OTHER THERAPEUTIC PRODUCTS [Concomitant]
  3. FISH OIL [Concomitant]
  4. CALCITRIOL [Concomitant]
  5. PRAVASTATIN [Concomitant]
     Dates: start: 20111113
  6. MULTAQ [Suspect]
     Indication: ATRIAL FIBRILLATION
     Route: 048
  7. ATORVASTATIN [Concomitant]
     Dates: end: 20111101
  8. WARFARIN SODIUM [Concomitant]
  9. COENZYME Q10 [Concomitant]

REACTIONS (1)
  - ATRIAL FIBRILLATION [None]
